FAERS Safety Report 9891913 (Version 1)
Quarter: 2014Q1

REPORT INFORMATION
  Report Type: Other
  Country: GB (occurrence: GB)
  Receive Date: 20140212
  Receipt Date: 20140212
  Transmission Date: 20141002
  Serious: Yes (Other)
  Sender: FDA-Public Use
  Company Number: GB-PERRIGO-14GB001428

PATIENT
  Sex: Female

DRUGS (6)
  1. RANITIDINE HYDROCHLORIDE 16028/0122 83.75 MG [Suspect]
     Indication: URTICARIA
     Dosage: 150 MG, BID
     Route: 065
  2. CETIRIZINE HYDROCHLORIDE 16208/0066 10 MG [Suspect]
     Indication: URTICARIA
     Dosage: 10 MG, DAILY
     Route: 065
     Dates: start: 201112
  3. CICLOSPORIN [Suspect]
     Indication: CHRONIC SPONTANEOUS URTICARIA
     Dosage: UNK
     Route: 065
     Dates: start: 201310
  4. FEXOFENADINE HYDROCHLORIDE [Suspect]
     Indication: CHRONIC SPONTANEOUS URTICARIA
     Dosage: 360 MG DAILY
     Route: 065
  5. HYDROXYZINE [Suspect]
     Indication: CHRONIC SPONTANEOUS URTICARIA
     Dosage: 50 MG, NOCTE
     Route: 065
  6. MONTELUKAST SODIUM [Suspect]
     Indication: CHRONIC SPONTANEOUS URTICARIA
     Dosage: 10 MG, NCTE
     Route: 065
     Dates: start: 201309

REACTIONS (6)
  - Angioedema [Unknown]
  - Chronic spontaneous urticaria [Recovering/Resolving]
  - Condition aggravated [Recovering/Resolving]
  - Pruritus [Unknown]
  - Drug ineffective [Unknown]
  - Insomnia [Unknown]
